FAERS Safety Report 9223600 (Version 1)
Quarter: 2013Q2

REPORT INFORMATION
  Report Type: Spontaneous
  Country: US (occurrence: US)
  Receive Date: 20130410
  Receipt Date: 20130410
  Transmission Date: 20140414
  Serious: Yes (Other)
  Sender: FDA-Public Use
  Company Number: US-ELI_LILLY_AND_COMPANY-US201304000977

PATIENT
  Sex: Male

DRUGS (4)
  1. HUMALOG LISPRO [Suspect]
     Indication: DIABETES MELLITUS
     Dosage: 5 U, TID
  2. JANUVIA [Concomitant]
  3. METFORMIN [Concomitant]
  4. LITHIUM CARBONATE [Concomitant]

REACTIONS (11)
  - Dementia Alzheimer^s type [Unknown]
  - Amnesia [Unknown]
  - Cold sweat [Unknown]
  - Hyperhidrosis [Unknown]
  - Tremor [Unknown]
  - Blood glucose increased [Unknown]
  - Bone density decreased [Unknown]
  - Renal disorder [Unknown]
  - Injection site extravasation [Unknown]
  - Influenza like illness [Unknown]
  - Blood glucose decreased [Unknown]
